FAERS Safety Report 7573506-4 (Version None)
Quarter: 2011Q2

REPORT INFORMATION
  Report Type: 
  Country: None (occurrence: None)
  Receive Date: 20110627
  Receipt Date: 20110617
  Transmission Date: 20111010
  Serious: Yes (Life-Threatening)
  Sender: FDA-Public Use
  Company Number: FR-SANOFI-AVENTIS-2011SA033191

PATIENT
  Age: 68 Year
  Sex: Male
  Weight: 74 kg

DRUGS (14)
  1. LASIX [Suspect]
     Indication: ELECTROLYTE IMBALANCE
     Route: 048
     Dates: start: 20110507, end: 20110511
  2. ATORVASTATIN CALCIUM [Concomitant]
     Route: 048
  3. PANTOPRAZOLE [Concomitant]
     Route: 048
  4. UVEDOSE [Concomitant]
  5. ASPIRIN [Concomitant]
     Route: 048
     Dates: end: 20110511
  6. ALL OTHER THERAPEUTIC PRODUCTS [Concomitant]
     Route: 048
  7. CORDARONE [Concomitant]
     Route: 048
     Dates: end: 20110501
  8. LERCANIDIPINE [Concomitant]
     Route: 048
  9. EPOETIN BETA [Concomitant]
  10. POTASSIUM CHLORIDE [Concomitant]
     Route: 048
     Dates: end: 20110511
  11. PREVISCAN [Concomitant]
     Route: 048
     Dates: start: 20110506
  12. ASCORBIC ACID [Concomitant]
     Route: 048
  13. MULTAQ [Suspect]
     Route: 048
     Dates: start: 20110509, end: 20110511
  14. LASIX [Suspect]
     Indication: FLUID OVERLOAD
     Route: 048
     Dates: start: 20110507, end: 20110511

REACTIONS (9)
  - MUSCLE SPASMS [None]
  - HYPERKALAEMIA [None]
  - OFF LABEL USE [None]
  - RENAL FAILURE CHRONIC [None]
  - UNDERDOSE [None]
  - BLOOD CREATININE INCREASED [None]
  - ASTHENIA [None]
  - RENAL FAILURE ACUTE [None]
  - NAUSEA [None]
